FAERS Safety Report 11169465 (Version 2)
Quarter: 2017Q1

REPORT INFORMATION
  Report Type: Spontaneous
  Country: DE (occurrence: DE)
  Receive Date: 20150605
  Receipt Date: 20170324
  Transmission Date: 20170428
  Serious: Yes (Hospitalization)
  Sender: FDA-Public Use
  Company Number: DE-TEVA-566587GER

PATIENT
  Age: 37 Year
  Sex: Male
  Weight: 80 kg

DRUGS (15)
  1. BEVACIZUMAB [Concomitant]
     Active Substance: BEVACIZUMAB
     Indication: COLORECTAL CANCER METASTATIC
     Route: 042
     Dates: start: 20150416, end: 20150416
  2. LEUCOVORIN. [Concomitant]
     Active Substance: LEUCOVORIN
     Indication: COLORECTAL CANCER METASTATIC
     Route: 042
  3. VALORON N [Concomitant]
     Active Substance: NALOXONE HYDROCHLORIDE\TILIDINE HYDROCHLORIDE
     Indication: PROCTITIS
     Dosage: 50 MILLIGRAM DAILY;
     Route: 048
     Dates: start: 20150414
  4. ATROPIN [Concomitant]
     Active Substance: ATROPINE
     Indication: VERTIGO
     Dosage: 0.5 AMPOULE
     Route: 042
     Dates: start: 20150416
  5. NEULASTA [Concomitant]
     Active Substance: PEGFILGRASTIM
     Indication: WHITE BLOOD CELL COUNT DECREASED
     Dosage: 6 MILLIGRAM DAILY;
     Route: 042
     Dates: start: 20150424, end: 20150424
  6. IRINOTECAN [Suspect]
     Active Substance: IRINOTECAN
     Route: 042
     Dates: start: 20150416, end: 20150416
  7. ATROPIN [Concomitant]
     Active Substance: ATROPINE
     Indication: PROPHYLAXIS
     Dosage: .5 DOSAGE FORMS DAILY; 0.5 AMPOULE
     Route: 042
     Dates: start: 20150416, end: 20150416
  8. FORTECORTIN [Concomitant]
     Active Substance: DEXAMETHASONE
     Indication: PROPHYLAXIS
     Route: 042
     Dates: start: 20150416
  9. NOVALGIN [Concomitant]
     Active Substance: METAMIZOLE SODIUM
     Indication: PROCTITIS
     Route: 048
     Dates: start: 20150423
  10. ABT-888 [Concomitant]
     Active Substance: VELIPARIB
     Dosage: DAY-2 THROUG 5 OF EACH 14-DAY CYCLE (2 IN 1 D)
     Route: 048
     Dates: start: 20150414, end: 20150423
  11. DEXAMETHASON [Concomitant]
     Active Substance: DEXAMETHASONE
     Indication: PROCTITIS
     Dosage: 8 MILLIGRAM DAILY;
     Route: 048
     Dates: start: 20150414
  12. KEVATRIL [Concomitant]
     Active Substance: GRANISETRON HYDROCHLORIDE
     Indication: PROPHYLAXIS
     Dosage: 1 DF=1 AMPOULE
     Route: 042
     Dates: start: 20150416
  13. LOPERAMID [Concomitant]
     Active Substance: LOPERAMIDE
     Indication: PROCTITIS
     Route: 048
     Dates: start: 20150414
  14. 5-FLUOROURACIL [Suspect]
     Active Substance: FLUOROURACIL
     Indication: COLORECTAL CANCER METASTATIC
     Dosage: OVER 46 HOURS ON DAY 1 OF EACH 14-DAY CYCLE
     Route: 042
     Dates: start: 20150416, end: 20150416
  15. IVEMEND [Concomitant]
     Active Substance: FOSAPREPITANT DIMEGLUMINE
     Indication: PROPHYLAXIS
     Route: 042
     Dates: start: 20150416

REACTIONS (1)
  - Proctitis [Unknown]

NARRATIVE: CASE EVENT DATE: 20150423
